FAERS Safety Report 24367067 (Version 3)
Quarter: 2024Q4

REPORT INFORMATION
  Report Type: Spontaneous
  Country: US (occurrence: US)
  Receive Date: 20240926
  Receipt Date: 20241107
  Transmission Date: 20250115
  Serious: Yes (Hospitalization, Other)
  Sender: INCYTE
  Company Number: US-INCYTE CORPORATION-2024IN010003

PATIENT

DRUGS (2)
  1. JAKAFI [Suspect]
     Active Substance: RUXOLITINIB
     Indication: Myeloproliferative neoplasm
     Dosage: 20 MILLIGRAM, BID
     Route: 048
     Dates: start: 202407
  2. JAKAFI [Suspect]
     Active Substance: RUXOLITINIB
     Dosage: 20 MILLIGRAM, BID
     Route: 048
     Dates: start: 202407

REACTIONS (11)
  - Immunodeficiency [Recovering/Resolving]
  - Hepatic cirrhosis [Recovering/Resolving]
  - Kidney fibrosis [Recovering/Resolving]
  - Intestinal perforation [Unknown]
  - Infection [Recovering/Resolving]
  - Herpes zoster [Recovering/Resolving]
  - Anxiety [Recovering/Resolving]
  - Gastrointestinal pain [Unknown]
  - Platelet count decreased [Unknown]
  - Product dose omission issue [Unknown]
  - Off label use [Unknown]

NARRATIVE: CASE EVENT DATE: 20240701
